FAERS Safety Report 22298354 (Version 1)
Quarter: 2023Q2

REPORT INFORMATION
  Report Type: Spontaneous
  Country: US (occurrence: US)
  Receive Date: 20230509
  Receipt Date: 20230509
  Transmission Date: 20230722
  Serious: Yes (Hospitalization, Other)
  Sender: FDA-Public Use
  Company Number: US-MLMSERVICE-20230424-4244842-1

PATIENT
  Age: 63 Year
  Sex: Male

DRUGS (3)
  1. OLANZAPINE [Suspect]
     Active Substance: OLANZAPINE
     Indication: Bipolar disorder
     Route: 065
     Dates: start: 2020, end: 2020
  2. AVAPRITINIB [Suspect]
     Active Substance: AVAPRITINIB
     Indication: Gastrointestinal cancer metastatic
     Route: 065
     Dates: start: 202003, end: 2020
  3. DASATINIB [Concomitant]
     Active Substance: DASATINIB
     Indication: Gastrointestinal stromal tumour
     Dosage: UNKNOWN
     Route: 065
     Dates: end: 202003

REACTIONS (5)
  - Salivary hypersecretion [Unknown]
  - Encephalopathy [Unknown]
  - Dysphagia [Unknown]
  - Parkinsonism [Unknown]
  - Mental impairment [Unknown]

NARRATIVE: CASE EVENT DATE: 20200101
